FAERS Safety Report 24843086 (Version 1)
Quarter: 2025Q1

REPORT INFORMATION
  Report Type: Report from Study
  Country: US (occurrence: US)
  Receive Date: 20250115
  Receipt Date: 20250115
  Transmission Date: 20250409
  Serious: No
  Sender: HRA PHARMA
  Company Number: US-ORG100014127-2024000056

PATIENT
  Age: 31 Year
  Sex: Male

DRUGS (15)
  1. LYSODREN [Suspect]
     Active Substance: MITOTANE
     Indication: Adrenocortical carcinoma
     Dosage: 2 TAB TWICE DAILY
     Route: 048
     Dates: start: 20231220
  2. LYSODREN [Suspect]
     Active Substance: MITOTANE
     Indication: Adrenocortical carcinoma
     Dosage: 03 TABLETS (1500G) TWICE DAILY
     Route: 048
  3. LYSODREN [Suspect]
     Active Substance: MITOTANE
     Indication: Adrenocortical carcinoma
     Dosage: 03 TABLETS (1500G) TWICE DAILY
     Route: 048
  4. LYSODREN [Suspect]
     Active Substance: MITOTANE
     Indication: Adrenocortical carcinoma
     Dosage: 05 TABLETS (2500MG) IN THE MORNING AND 6 TABLETS (3000MG) IN THE EVENING
     Route: 048
     Dates: start: 2024
  5. ALBUTEROL AER HFA [Concomitant]
     Indication: Product used for unknown indication
  6. CORTEF TAB 10MG [Concomitant]
     Indication: Product used for unknown indication
  7. MAGNESIUM TAB 400MG [Concomitant]
     Indication: Product used for unknown indication
  8. NARCAN SPR 4MG [Concomitant]
     Indication: Product used for unknown indication
  9. TAMSULOSIN [Concomitant]
     Active Substance: TAMSULOSIN
     Indication: Product used for unknown indication
  10. VITAMIN D3 CHW 5000UNIT [Concomitant]
     Indication: Product used for unknown indication
  11. IMODIUM [Concomitant]
     Active Substance: LOPERAMIDE HYDROCHLORIDE
     Indication: Product used for unknown indication
  12. ZOFRAN [Concomitant]
     Active Substance: ONDANSETRON HYDROCHLORIDE
     Indication: Product used for unknown indication
  13. FLUTICASONE [Concomitant]
     Active Substance: FLUTICASONE
     Indication: Product used for unknown indication
  14. LEVOTHYROXIN TAB 150MCG [Concomitant]
     Indication: Hypothyroidism
  15. VITAMIN B12 TAB 100MCG [Concomitant]
     Indication: Product used for unknown indication

REACTIONS (10)
  - Brain fog [Not Recovered/Not Resolved]
  - Feeling drunk [Not Recovered/Not Resolved]
  - Nasopharyngitis [Not Recovered/Not Resolved]
  - Pain in extremity [Recovering/Resolving]
  - Abdominal pain upper [Not Recovered/Not Resolved]
  - Diarrhoea [Not Recovered/Not Resolved]
  - Dizziness [Not Recovered/Not Resolved]
  - Fatigue [Not Recovered/Not Resolved]
  - Diarrhoea [Not Recovered/Not Resolved]
  - Nausea [Not Recovered/Not Resolved]

NARRATIVE: CASE EVENT DATE: 20230101
